FAERS Safety Report 24317628 (Version 2)
Quarter: 2024Q4

REPORT INFORMATION
  Report Type: Spontaneous
  Country: US (occurrence: US)
  Receive Date: 20240913
  Receipt Date: 20241127
  Transmission Date: 20250115
  Serious: No
  Sender: PFIZER
  Company Number: US-PFIZER INC-202400254848

PATIENT
  Age: 68 Year
  Sex: Female
  Weight: 82.19 kg

DRUGS (2)
  1. BOSULIF [Suspect]
     Active Substance: BOSUTINIB MONOHYDRATE
     Indication: Chronic myeloid leukaemia
     Dosage: 500 MG, DAILY (1 TABLET DAILY WITH FOOD)
     Route: 048
  2. BOSULIF [Suspect]
     Active Substance: BOSUTINIB MONOHYDRATE
     Dosage: 300 MG, 1X/DAY (3 TABLET ONCE DAILY WITH FOOD)
     Route: 048

REACTIONS (2)
  - Daydreaming [Unknown]
  - Illness [Not Recovered/Not Resolved]
